FAERS Safety Report 17109474 (Version 1)
Quarter: 2019Q4

REPORT INFORMATION
  Report Type: Spontaneous
  Country: US (occurrence: US)
  Receive Date: 20191108
  Receipt Date: 20191108
  Transmission Date: 20200122
  Serious: No
  Sender: FDA-Public Use
  Company Number: None

PATIENT

DRUGS (2)
  1. NEXTERONE [Suspect]
     Active Substance: AMIODARONE HYDROCHLORIDE
  2. CARDENE [Suspect]
     Active Substance: NICARDIPINE HYDROCHLORIDE

REACTIONS (4)
  - Wrong product administered [None]
  - Product appearance confusion [None]
  - Hypotension [None]
  - Haemodynamic instability [None]
